FAERS Safety Report 9357692 (Version 2)
Quarter: 2013Q2

REPORT INFORMATION
  Report Type: Spontaneous
  Country: JP (occurrence: JP)
  Receive Date: 20130620
  Receipt Date: 20130627
  Transmission Date: 20140414
  Serious: Yes (Hospitalization)
  Sender: FDA-Public Use
  Company Number: JP-PFIZER INC-2013184019

PATIENT
  Age: 87 Year
  Sex: Female

DRUGS (7)
  1. ANCARON [Suspect]
     Indication: CARDIO-RESPIRATORY ARREST
     Dosage: 100 MG DAILY
     Route: 048
     Dates: start: 2010, end: 20120211
  2. ANCARON [Suspect]
     Dosage: 100 MG, 2X/DAY
     Route: 048
     Dates: start: 2010, end: 20120211
  3. VITAMEDIN [Concomitant]
     Dosage: UNK
  4. LASIX [Concomitant]
     Dosage: UNK
  5. SELARA [Concomitant]
     Dosage: UNK
  6. ALOSENN [Concomitant]
     Indication: CONSTIPATION
     Dosage: UNK
  7. WYPAX [Concomitant]
     Indication: NEUROSIS
     Dosage: UNK

REACTIONS (3)
  - Hepatic cirrhosis [Recovering/Resolving]
  - Hypothyroidism [Recovering/Resolving]
  - Pyrexia [Unknown]
